FAERS Safety Report 15480939 (Version 2)
Quarter: 2018Q4

REPORT INFORMATION
  Report Type: Spontaneous
  Country: SE (occurrence: SE)
  Receive Date: 20181010
  Receipt Date: 20181118
  Transmission Date: 20190205
  Serious: Yes (Hospitalization, Disabling)
  Sender: FDA-Public Use
  Company Number: SE-TEVA-2018-SE-962462

PATIENT
  Age: 62 Year
  Sex: Male

DRUGS (7)
  1. METOPROLOL. [Suspect]
     Active Substance: METOPROLOL
     Indication: ANGINA UNSTABLE
     Route: 065
     Dates: end: 201809
  2. SILDENAFIL. [Concomitant]
     Active Substance: SILDENAFIL
     Route: 065
  3. ATORVASTATIN [Concomitant]
     Active Substance: ATORVASTATIN
     Route: 065
  4. TROMBYL [Concomitant]
     Active Substance: ASPIRIN
     Route: 065
  5. NITROLINGUAL [Concomitant]
     Active Substance: NITROGLYCERIN
     Route: 065
  6. BRILIQUE [Concomitant]
     Active Substance: TICAGRELOR
     Route: 065
  7. LOSARTAN. [Concomitant]
     Active Substance: LOSARTAN
     Route: 065

REACTIONS (2)
  - Dyspnoea exertional [Not Recovered/Not Resolved]
  - Dyspnoea [Not Recovered/Not Resolved]

NARRATIVE: CASE EVENT DATE: 201809
